FAERS Safety Report 20845407 (Version 1)
Quarter: 2022Q2

REPORT INFORMATION
  Report Type: Spontaneous
  Country: US (occurrence: US)
  Receive Date: 20220518
  Receipt Date: 20220518
  Transmission Date: 20220721
  Serious: No
  Sender: FDA-Public Use
  Company Number: US-TAKEDA-2022TUS032879

PATIENT
  Sex: Male

DRUGS (1)
  1. ENTYVIO [Suspect]
     Active Substance: VEDOLIZUMAB
     Indication: Product used for unknown indication
     Dosage: UNK
     Route: 042

REACTIONS (7)
  - Skin exfoliation [Unknown]
  - Joint swelling [Unknown]
  - Serum sickness [Unknown]
  - Rash [Unknown]
  - Arthralgia [Unknown]
  - Pyrexia [Unknown]
  - Pruritus [Unknown]
